FAERS Safety Report 10533754 (Version 1)
Quarter: 2014Q4

REPORT INFORMATION
  Report Type: Report from Study
  Country: CA (occurrence: CA)
  Receive Date: 20141022
  Receipt Date: 20141022
  Transmission Date: 20150529
  Serious: Yes (Hospitalization)
  Sender: FDA-Public Use
  Company Number: CA-JNJFOC-20141011722

PATIENT
  Age: 12 Year
  Sex: Male
  Weight: 38.5 kg

DRUGS (4)
  1. REMICADE [Suspect]
     Active Substance: INFLIXIMAB
     Indication: CROHN^S DISEASE
     Dosage: INDUCTION DOSING SCHEDULED AS 0,2,6 AND ONCE EVERY 8 WEEKS.
     Route: 042
     Dates: start: 20140911
  2. CHICKEN POX VACCINE [Suspect]
     Active Substance: VARICELLA-ZOSTER VIRUS STRAIN OKA/MERCK LIVE ANTIGEN
     Indication: PROPHYLAXIS
     Route: 065
  3. METHOTREXATE [Concomitant]
     Active Substance: METHOTREXATE
     Route: 065
  4. REMICADE [Suspect]
     Active Substance: INFLIXIMAB
     Indication: CROHN^S DISEASE
     Dosage: INDUCTION DOSING SCHEDULED AS 0,2,6 AND ONCE EVERY 8 WEEKS.
     Route: 042
     Dates: start: 201410

REACTIONS (2)
  - Contraindication to vaccination [Unknown]
  - Varicella [Not Recovered/Not Resolved]

NARRATIVE: CASE EVENT DATE: 201410
